FAERS Safety Report 8456344-X (Version None)
Quarter: 2012Q2

REPORT INFORMATION
  Report Type: 
  Country: None (occurrence: None)
  Receive Date: 20120621
  Receipt Date: 20120613
  Transmission Date: 20120825
  Serious: Yes (Other)
  Sender: FDA-Public Use
  Company Number: BR-GLAXOSMITHKLINE-A0981735A

PATIENT
  Sex: Female
  Weight: 86 kg

DRUGS (4)
  1. COMBIVENT [Suspect]
     Indication: ASTHMA
     Route: 065
     Dates: start: 20070101
  2. BEROTEC [Suspect]
     Indication: ASTHMA
     Dosage: 10DROP EIGHT TIMES PER DAY
     Route: 055
     Dates: start: 19990101
  3. FLUTICASONE PROPIONATE/SALMETEROL [Suspect]
     Indication: ASTHMA
     Dosage: 1PUFF TWICE PER DAY
     Route: 055
     Dates: start: 19990101
  4. ATROVENT [Suspect]
     Indication: ASTHMA
     Dosage: 12DROP EIGHT TIMES PER DAY
     Route: 055
     Dates: start: 19990101

REACTIONS (1)
  - ASTHMA [None]
